FAERS Safety Report 5938312-2 (Version None)
Quarter: 2008Q4

REPORT INFORMATION
  Report Type: 
  Country: None (occurrence: None)
  Receive Date: 20081103
  Receipt Date: 20081028
  Transmission Date: 20090506
  Serious: Yes (Other)
  Sender: FDA-Public Use
  Company Number: GB-RANBAXY-2008RR-16839

PATIENT
  Sex: Male

DRUGS (5)
  1. GABAPENTIN [Suspect]
     Route: 048
  2. LYRICA [Suspect]
     Route: 048
  3. ACE INHIBITOR NOS [Suspect]
  4. LISINOPRIL [Suspect]
     Dosage: 15 MG, UNK
  5. LISINOPRIL [Suspect]
     Dosage: 5 MG, UNK

REACTIONS (5)
  - BLOOD PRESSURE DECREASED [None]
  - CARDIAC FAILURE [None]
  - DRUG INEFFECTIVE [None]
  - DYSPNOEA [None]
  - SYNCOPE [None]
